FAERS Safety Report 6114898-2 (Version None)
Quarter: 2009Q1

REPORT INFORMATION
  Report Type: 
  Country: None (occurrence: None)
  Receive Date: 20090313
  Receipt Date: 20090306
  Transmission Date: 20090719
  Serious: Yes (Hospitalization)
  Sender: FDA-Public Use
  Company Number: PHHY2009FR08410

PATIENT
  Sex: Female

DRUGS (2)
  1. EXFORGE [Suspect]
     Indication: HYPERTENSION
     Dosage: 160/10 MG DAILY
     Dates: start: 20080101
  2. CRESTOR [Suspect]
     Indication: HYPERLIPIDAEMIA
     Dosage: UNK
     Dates: start: 20080101

REACTIONS (3)
  - DERMATITIS BULLOUS [None]
  - GENERALISED ERYTHEMA [None]
  - TOXIC SKIN ERUPTION [None]
